FAERS Safety Report 20861905 (Version 1)
Quarter: 2022Q2

REPORT INFORMATION
  Report Type: Spontaneous
  Country: US (occurrence: None)
  Receive Date: 20220521
  Receipt Date: 20220521
  Transmission Date: 20220721
  Serious: No
  Sender: FDA-Public Use
  Company Number: None

PATIENT
  Age: 18 Month
  Sex: Female
  Weight: 9.45 kg

DRUGS (2)
  1. BLUE LIZARD BABY [Suspect]
     Active Substance: TITANIUM DIOXIDE\ZINC OXIDE
     Indication: Prophylaxis against solar radiation
     Route: 061
     Dates: start: 20220502, end: 20220520
  2. NEUTROGENA PURE AND FREE SUNSCREEN BROAD SPECTRUM SPF 50 [Suspect]
     Active Substance: ZINC OXIDE

REACTIONS (3)
  - Application site swelling [None]
  - Swelling face [None]
  - Rash erythematous [None]

NARRATIVE: CASE EVENT DATE: 20220520
